FAERS Safety Report 11964805 (Version 3)
Quarter: 2016Q4

REPORT INFORMATION
  Report Type: Report from Study
  Country: US (occurrence: US)
  Receive Date: 20160127
  Receipt Date: 20161129
  Transmission Date: 20170206
  Serious: No
  Sender: FDA-Public Use
  Company Number: PHEH2016US001980

PATIENT
  Age: 45 Year
  Sex: Female
  Weight: 77.98 kg

DRUGS (1)
  1. GILENYA [Suspect]
     Active Substance: FINGOLIMOD HYDROCHLORIDE
     Indication: MULTIPLE SCLEROSIS
     Dosage: 0.5 MG, QD
     Route: 048
     Dates: start: 20160122

REACTIONS (6)
  - Depressed mood [Not Recovered/Not Resolved]
  - Yawning [Recovering/Resolving]
  - Abdominal pain upper [Recovering/Resolving]
  - Central nervous system lesion [Unknown]
  - Memory impairment [Unknown]
  - Fatigue [Not Recovered/Not Resolved]

NARRATIVE: CASE EVENT DATE: 20160122
